FAERS Safety Report 8410708-9 (Version None)
Quarter: 2012Q2

REPORT INFORMATION
  Report Type: 
  Country: None (occurrence: None)
  Receive Date: 20120605
  Receipt Date: 20120524
  Transmission Date: 20120825
  Serious: Yes (Hospitalization)
  Sender: FDA-Public Use
  Company Number: CO-ELI_LILLY_AND_COMPANY-CO201205009279

PATIENT
  Age: 80 Year
  Sex: Female

DRUGS (9)
  1. TRAZODONE HCL [Concomitant]
  2. ATORVASTATIN CALCIUM [Concomitant]
  3. FUROSEMIDE [Concomitant]
  4. WARFARIN [Concomitant]
  5. LANITOP [Concomitant]
  6. FOLIC ACID [Concomitant]
  7. METOPROLOL TARTRATE [Concomitant]
  8. CALCIUM W/VITAMIN D NOS [Concomitant]
     Indication: SUPPLEMENTATION THERAPY
  9. FORTEO [Suspect]
     Indication: OSTEOPOROSIS
     Dosage: 20 UG, QD
     Route: 058

REACTIONS (2)
  - GENERAL SYMPTOM [None]
  - GASTROINTESTINAL BACTERIAL INFECTION [None]
